FAERS Safety Report 10362712 (Version 1)
Quarter: 2014Q3

REPORT INFORMATION
  Report Type: Spontaneous
  Country: US (occurrence: US)
  Receive Date: 20140805
  Receipt Date: 20140805
  Transmission Date: 20150326
  Serious: No
  Sender: FDA-Public Use
  Company Number: US-PFIZER INC-2014216223

PATIENT
  Age: 61 Year
  Sex: Male
  Weight: 92.97 kg

DRUGS (1)
  1. PRISTIQ EXTENDED RELEASE [Suspect]
     Active Substance: DESVENLAFAXINE SUCCINATE
     Indication: DEPRESSION
     Dosage: 100 MG, DAILY

REACTIONS (2)
  - Drug ineffective [Unknown]
  - Medication residue present [Unknown]

NARRATIVE: CASE EVENT DATE: 201407
